FAERS Safety Report 25598813 (Version 2)
Quarter: 2025Q3

REPORT INFORMATION
  Report Type: Spontaneous
  Country: US (occurrence: US)
  Receive Date: 20250724
  Receipt Date: 20250819
  Transmission Date: 20251021
  Serious: Yes (Hospitalization, Other)
  Sender: SANOFI AVENTIS
  Company Number: US-SA-2025SA210184

PATIENT
  Age: 55 Year
  Sex: Female

DRUGS (30)
  1. REZUROCK [Suspect]
     Active Substance: BELUMOSUDIL
     Indication: Acute graft versus host disease
     Dosage: 200MG, BID
     Route: 048
  2. TYLENOL [Concomitant]
     Active Substance: ACETAMINOPHEN
  3. AMOXICILLIN [Concomitant]
     Active Substance: AMOXICILLIN
  4. BACTRIM DS [Concomitant]
     Active Substance: SULFAMETHOXAZOLE\TRIMETHOPRIM
  5. CRESEMBA [Concomitant]
     Active Substance: ISAVUCONAZONIUM SULFATE
  6. DEXAMETHASONE [Concomitant]
     Active Substance: DEXAMETHASONE
  7. PANTOPRAZOLE [Concomitant]
     Active Substance: PANTOPRAZOLE
  8. TACROLIMUS [Concomitant]
     Active Substance: TACROLIMUS
  9. Tears Naturale II [Concomitant]
  10. Fluoridex [Concomitant]
  11. VALACYCLOVIR [Concomitant]
     Active Substance: VALACYCLOVIR HYDROCHLORIDE
  12. VITAMIN B12 [Concomitant]
     Active Substance: CYANOCOBALAMIN
  13. Neomycin;Polymyxin [Concomitant]
  14. CLOBETASOL PROPIONATE [Concomitant]
     Active Substance: CLOBETASOL PROPIONATE
  15. BACITRACIN [Concomitant]
     Active Substance: BACITRACIN
  16. HYDROCORTISONE [Concomitant]
     Active Substance: HYDROCORTISONE
  17. HYDROXYZINE HYDROCHLORIDE [Concomitant]
     Active Substance: HYDROXYZINE HYDROCHLORIDE
  18. LANTUS [Concomitant]
     Active Substance: INSULIN GLARGINE
  19. MIRALAX [Concomitant]
     Active Substance: POLYETHYLENE GLYCOL 3350
  20. MODAFINIL [Concomitant]
     Active Substance: MODAFINIL
  21. NYSTATIN [Concomitant]
     Active Substance: NYSTATIN
  22. OXYCODONE [Concomitant]
     Active Substance: OXYCODONE
  23. PREDNISONE [Concomitant]
     Active Substance: PREDNISONE
  24. PREVYMIS [Concomitant]
     Active Substance: LETERMOVIR
  25. REPATHA [Concomitant]
     Active Substance: EVOLOCUMAB
     Route: 058
  26. RESTASIS [Concomitant]
     Active Substance: CYCLOSPORINE
  27. TEMAZEPAM [Concomitant]
     Active Substance: TEMAZEPAM
  28. URSODIOL [Concomitant]
     Active Substance: URSODIOL
  29. HUMALOG [Concomitant]
     Active Substance: INSULIN LISPRO
  30. ACETAMINOPHEN [Concomitant]
     Active Substance: ACETAMINOPHEN

REACTIONS (3)
  - Spinal fracture [Not Recovered/Not Resolved]
  - Hospitalisation [Recovered/Resolved]
  - Product use in unapproved indication [Unknown]

NARRATIVE: CASE EVENT DATE: 20250101
